FAERS Safety Report 16040865 (Version 1)
Quarter: 2019Q1

REPORT INFORMATION
  Report Type: Spontaneous
  Country: US (occurrence: US)
  Receive Date: 20190206
  Receipt Date: 20190206
  Transmission Date: 20190418
  Serious: Yes (Hospitalization)
  Sender: FDA-Public Use
  Company Number: None

PATIENT
  Sex: Male
  Weight: 38.6 kg

DRUGS (7)
  1. METHOTREXATE. [Suspect]
     Active Substance: METHOTREXATE
     Dates: end: 20181026
  2. DEXAMETHASONE. [Suspect]
     Active Substance: DEXAMETHASONE
     Dates: end: 20181031
  3. HYDROCORTISONE. [Suspect]
     Active Substance: HYDROCORTISONE
     Dates: end: 20181026
  4. MITOXANTRONE HYDROCHLORIDE. [Suspect]
     Active Substance: MITOXANTRONE HYDROCHLORIDE
     Dosage: ?          OTHER DOSE:25.4MG;?
     Dates: end: 20181014
  5. CYTARABINE. [Suspect]
     Active Substance: CYTARABINE
     Dates: end: 20181026
  6. ONCASPAR [Suspect]
     Active Substance: PEGASPARGASE
     Dates: end: 20181014
  7. VINCRISTINE SULFATE. [Suspect]
     Active Substance: VINCRISTINE SULFATE
     Dosage: ?          OTHER DOSE:5.7MG;?
     Dates: end: 20181027

REACTIONS (14)
  - Thrombocytopenia [None]
  - Pulmonary alveolar haemorrhage [None]
  - Left ventricular dysfunction [None]
  - Leptotrichia infection [None]
  - Neutropenia [None]
  - Pulse absent [None]
  - Dialysis [None]
  - Bacteraemia [None]
  - Hypotension [None]
  - Urine output decreased [None]
  - Tachycardia [None]
  - Discomfort [None]
  - Pulmonary oedema [None]
  - Haemorrhage [None]
